FAERS Safety Report 16882562 (Version 4)
Quarter: 2023Q1

REPORT INFORMATION
  Report Type: Report from Study
  Country: US (occurrence: US)
  Receive Date: 20191003
  Receipt Date: 20230329
  Transmission Date: 20230417
  Serious: Yes (Hospitalization, Other)
  Sender: FDA-Public Use
  Company Number: US-BIOGEN-2019BI00792388

PATIENT
  Age: 67 Year
  Sex: Female

DRUGS (2)
  1. TYSABRI [Suspect]
     Active Substance: NATALIZUMAB
     Indication: Multiple sclerosis
     Dosage: INFUSED OVER 1 HOUR
     Route: 050
     Dates: start: 20090327
  2. TYSABRI [Suspect]
     Active Substance: NATALIZUMAB
     Dosage: INFUSED OVER 1 HOUR
     Route: 050
     Dates: start: 20191010

REACTIONS (9)
  - Escherichia urinary tract infection [Recovered/Resolved]
  - Urinary tract infection pseudomonal [Recovered/Resolved]
  - Coronary artery disease [Recovered/Resolved]
  - Diabetes mellitus [Unknown]
  - Asthma [Unknown]
  - Infection [Unknown]
  - Skin disorder [Unknown]
  - Multiple sclerosis [Unknown]
  - Prescribed underdose [Unknown]

NARRATIVE: CASE EVENT DATE: 20190724
